FAERS Safety Report 10048626 (Version 1)
Quarter: 2014Q1

REPORT INFORMATION
  Report Type: Report from Study
  Country: FR (occurrence: FR)
  Receive Date: 20140331
  Receipt Date: 20140331
  Transmission Date: 20141002
  Serious: Yes (Other)
  Sender: FDA-Public Use
  Company Number: PHHY2013FR155749

PATIENT
  Sex: Female

DRUGS (1)
  1. NILOTINIB [Suspect]

REACTIONS (1)
  - Coronary artery occlusion [Unknown]
